FAERS Safety Report 6552142-2 (Version None)
Quarter: 2010Q1

REPORT INFORMATION
  Report Type: 
  Country: None (occurrence: None)
  Receive Date: 20100126
  Receipt Date: 20100114
  Transmission Date: 20100710
  Serious: Yes (Other)
  Sender: FDA-Public Use
  Company Number: PL-B.I. PHARMACEUTICALS,INC./RIDGEFIELD-2009-DE-07803BY

PATIENT
  Sex: Female

DRUGS (6)
  1. PRITOR [Suspect]
     Dosage: 40 MG
     Route: 048
  2. ACARD [Concomitant]
     Dosage: 75 MG
     Route: 048
  3. TIALORID [Concomitant]
     Route: 065
  4. CONCOR [Concomitant]
     Route: 065
  5. POLFILIN [Concomitant]
     Route: 065
  6. XARTAN [Concomitant]
     Route: 065

REACTIONS (4)
  - ANGINA PECTORIS [None]
  - BACK PAIN [None]
  - MUSCLE SPASMS [None]
  - SENSORY DISTURBANCE [None]
